FAERS Safety Report 4430220-1 (Version None)
Quarter: 2004Q3

REPORT INFORMATION
  Report Type: 
  Country: None (occurrence: None)
  Receive Date: 20040820
  Receipt Date: 20040813
  Transmission Date: 20050211
  Serious: Yes (Hospitalization)
  Sender: FDA-Public Use
  Company Number: US-JNJFOC-20040805010

PATIENT
  Age: 16 Year
  Sex: Female
  Weight: 48.99 kg

DRUGS (3)
  1. TOPAMAX [Suspect]
     Dosage: 150 MG IN THE AM AND 200 MG IN THE PM.
     Route: 049
     Dates: start: 20040630
  2. TRILEPTAL [Concomitant]
  3. KLONIPIN [Concomitant]

REACTIONS (6)
  - APLASTIC ANAEMIA [None]
  - ASTHENIA [None]
  - CONTUSION [None]
  - FALL [None]
  - PLATELET DISORDER [None]
  - WEIGHT DECREASED [None]
